FAERS Safety Report 20011745 (Version 3)
Quarter: 2022Q1

REPORT INFORMATION
  Report Type: Report from Study
  Country: US (occurrence: US)
  Receive Date: 20211029
  Receipt Date: 20220126
  Transmission Date: 20220423
  Serious: Yes (Hospitalization, Other)
  Sender: FDA-Public Use
  Company Number: US-GILEAD-2021-0554589

PATIENT
  Age: 70 Year
  Sex: Female

DRUGS (2)
  1. AMBRISENTAN [Suspect]
     Active Substance: AMBRISENTAN
     Indication: Pulmonary arterial hypertension
     Dosage: 5 MG, QD
     Route: 065
     Dates: start: 20210430
  2. REMODULIN [Suspect]
     Active Substance: TREPROSTINIL
     Indication: Pulmonary arterial hypertension
     Route: 065
     Dates: start: 20210430

REACTIONS (1)
  - Unevaluable event [Recovered/Resolved]
